FAERS Safety Report 23696453 (Version 3)
Quarter: 2024Q2

REPORT INFORMATION
  Report Type: Spontaneous
  Country: TR (occurrence: TR)
  Receive Date: 20240402
  Receipt Date: 20240425
  Transmission Date: 20240716
  Serious: Yes (Life-Threatening, Hospitalization, Other)
  Sender: FDA-Public Use
  Company Number: None

PATIENT

DRUGS (10)
  1. LIDOCAINE [Suspect]
     Active Substance: LIDOCAINE
     Indication: Rhinoplasty
     Dosage: 20 MG/ML, DILUTING IT TO 10 ML, 48 MG
  2. LIDOCAINE [Suspect]
     Active Substance: LIDOCAINE
     Indication: Local anaesthesia
  3. EPINEPHRINE [Suspect]
     Active Substance: EPINEPHRINE
     Indication: Rhinoplasty
     Dosage: 0.012 MG/ML, 0.03 MG ADMINISTERED
  4. EPINEPHRINE [Suspect]
     Active Substance: EPINEPHRINE
     Indication: Local anaesthesia
  5. FENTANYL [Concomitant]
     Active Substance: FENTANYL\FENTANYL CITRATE
     Indication: Rhinoplasty
     Dosage: UNK
     Route: 065
  6. PROPOFOL [Concomitant]
     Active Substance: PROPOFOL
     Indication: Rhinoplasty
     Dosage: UNK
     Route: 065
  7. PROPOFOL [Concomitant]
     Active Substance: PROPOFOL
     Dosage: UNK, 150 MCG/KG/MINUTE
     Route: 065
  8. ROCURONIUM [Concomitant]
     Active Substance: ROCURONIUM BROMIDE
     Indication: Rhinoplasty
     Dosage: UNK
     Route: 065
  9. SEVOFLURANE [Concomitant]
     Active Substance: SEVOFLURANE
     Indication: Rhinoplasty
     Dosage: 1 %
     Route: 065
  10. CEFAZOLIN [Concomitant]
     Active Substance: CEFAZOLIN
     Dosage: UNK
     Route: 065

REACTIONS (6)
  - Stress cardiomyopathy [Recovered/Resolved]
  - Arrhythmic storm [Recovered/Resolved]
  - Acute myocardial infarction [Recovered/Resolved]
  - Hypertension [Recovered/Resolved]
  - Ventricular tachycardia [Recovered/Resolved]
  - Circulatory collapse [Recovered/Resolved]
